FAERS Safety Report 9956397 (Version 2)
Quarter: 2014Q1

REPORT INFORMATION
  Report Type: Spontaneous
  Country: PR (occurrence: PR)
  Receive Date: 20140304
  Receipt Date: 20140304
  Transmission Date: 20141002
  Serious: No
  Sender: FDA-Public Use
  Company Number: PR-ABBVIE-12P-131-0991988-00

PATIENT
  Age: 45 Year
  Sex: Male
  Weight: 71.28 kg

DRUGS (2)
  1. HUMIRA [Suspect]
     Indication: ANKYLOSING SPONDYLITIS
     Route: 058
     Dates: start: 201112
  2. CELEBREX [Concomitant]
     Indication: ANKYLOSING SPONDYLITIS
     Dosage: 1 TABLET DAILY AS NEEDED
     Route: 048
     Dates: start: 201112

REACTIONS (1)
  - Injection site rash [Recovered/Resolved]
